FAERS Safety Report 6187207-0 (Version None)
Quarter: 2009Q2

REPORT INFORMATION
  Report Type: 
  Country: None (occurrence: None)
  Receive Date: 20090512
  Receipt Date: 20090501
  Transmission Date: 20091009
  Serious: Yes (Other)
  Sender: FDA-Public Use
  Company Number: PHEH2009US02431

PATIENT
  Sex: Female
  Weight: 61.224 kg

DRUGS (4)
  1. FEMARA [Suspect]
     Indication: BREAST CANCER
     Dosage: 2.5 MG, QD
     Route: 048
     Dates: start: 20080618
  2. CALCIUM [Concomitant]
  3. VITAMIN D [Concomitant]
  4. POTASSIUM CHLORIDE [Concomitant]

REACTIONS (7)
  - BONE DISORDER [None]
  - DEAFNESS [None]
  - DIZZINESS [None]
  - DYSKINESIA [None]
  - MALAISE [None]
  - MUSCULAR WEAKNESS [None]
  - TINNITUS [None]
